FAERS Safety Report 12121625 (Version 1)
Quarter: 2016Q1

REPORT INFORMATION
  Report Type: Spontaneous
  Country: US (occurrence: US)
  Receive Date: 20160226
  Receipt Date: 20160226
  Transmission Date: 20160526
  Serious: No
  Sender: FDA-Public Use
  Company Number: US-ALLERGAN-1211813US

PATIENT
  Sex: Female

DRUGS (3)
  1. REFRESH OPTIVE SENSITIVE [Suspect]
     Active Substance: CARBOXYMETHYLCELLULOSE SODIUM\GLYCERIN
     Indication: EYE LUBRICATION THERAPY
     Dosage: 6 GTT, UNK
     Route: 047
     Dates: start: 20120823, end: 20120824
  2. ABILIFY [Concomitant]
     Active Substance: ARIPIPRAZOLE
     Indication: DEPRESSION
     Dosage: UNK
  3. WELLBUTRIN [Concomitant]
     Active Substance: BUPROPION HYDROCHLORIDE
     Indication: DEPRESSION
     Dosage: UNK

REACTIONS (5)
  - Incorrect dose administered [Unknown]
  - Eye irritation [Recovered/Resolved]
  - Foreign body sensation in eyes [Recovered/Resolved]
  - Palpitations [Recovered/Resolved]
  - Ocular hyperaemia [Recovered/Resolved]
